FAERS Safety Report 15358929 (Version 1)
Quarter: 2018Q3

REPORT INFORMATION
  Report Type: Spontaneous
  Country: US (occurrence: US)
  Receive Date: 20180906
  Receipt Date: 20180906
  Transmission Date: 20181010
  Serious: No
  Sender: FDA-Public Use
  Company Number: US-PTC THERAPEUTICS, INC.-US-2018PTC000709

PATIENT

DRUGS (1)
  1. EMFLAZA [Suspect]
     Active Substance: DEFLAZACORT
     Indication: MUSCULAR DYSTROPHY
     Dosage: 72 MG, EVERY SATURDAY AND SUNDAY
     Route: 048
     Dates: start: 20170727

REACTIONS (3)
  - Irritability [Recovered/Resolved]
  - Weight decreased [Unknown]
  - Off label use [Unknown]
